FAERS Safety Report 9352982 (Version 1)
Quarter: 2013Q2

REPORT INFORMATION
  Report Type: Spontaneous
  Country: BE (occurrence: BE)
  Receive Date: 20130618
  Receipt Date: 20130618
  Transmission Date: 20140414
  Serious: Yes (Disabling)
  Sender: FDA-Public Use
  Company Number: PHHY2013BE061710

PATIENT
  Age: 62 Year
  Sex: Male
  Weight: 76.5 kg

DRUGS (13)
  1. ACLASTA [Suspect]
     Dosage: UNK
     Route: 042
     Dates: start: 20100108
  2. ACLASTA [Suspect]
     Dosage: UNK
     Route: 042
     Dates: start: 20110304
  3. ACLASTA [Suspect]
     Dosage: UNK
     Route: 042
     Dates: start: 20120203
  4. EMCONCOR                                /SPA/ [Concomitant]
     Dosage: 5 MG, QD
     Route: 048
  5. LIPITOR                                 /UNK/ [Concomitant]
     Dosage: 10 MG, QD
     Route: 048
  6. CARDIOASPIRINE [Concomitant]
     Dosage: UNK, QD
     Route: 048
  7. ZOVIRAX [Concomitant]
     Dosage: UNK
     Route: 048
  8. EUSAPRIM                                /GFR/ [Concomitant]
     Dosage: UNK
     Route: 048
  9. MABTHERA [Concomitant]
     Dosage: 965 MG (FOR NEXT 5 CURES), 725 MG (FIRST CURES), 6 CYCLES
     Route: 042
  10. BENDAMUSTINE [Concomitant]
     Dosage: 190 MG, 6 CYCLES
     Route: 042
  11. D-CURE [Concomitant]
     Dosage: UNK, ONCE MONTHLY
     Route: 048
     Dates: start: 20080617
  12. CALCIUM CARBONATE [Concomitant]
     Dosage: 1.25 G, QD
     Dates: start: 20080617
  13. CORTICOSTEROIDS [Concomitant]
     Dosage: UNK
     Dates: start: 2007, end: 2011

REACTIONS (1)
  - Osteonecrosis [Recovering/Resolving]
